FAERS Safety Report 5707683-4 (Version None)
Quarter: 2008Q2

REPORT INFORMATION
  Report Type: 
  Country: None (occurrence: None)
  Receive Date: 20080416
  Receipt Date: 20080410
  Transmission Date: 20081010
  Serious: Yes (Other)
  Sender: FDA-Public Use
  Company Number: ES-PFIZER INC-2008032004

PATIENT
  Age: 50 Year
  Sex: Female

DRUGS (1)
  1. CARDYL [Suspect]
     Route: 048
     Dates: start: 20080201, end: 20080208

REACTIONS (3)
  - BONE PAIN [None]
  - HAEMATEMESIS [None]
  - MALAISE [None]
